FAERS Safety Report 8599850-X (Version None)
Quarter: 2012Q3

REPORT INFORMATION
  Report Type: 
  Country: None (occurrence: None)
  Receive Date: 20120816
  Receipt Date: 20120814
  Transmission Date: 20120928
  Serious: No
  Sender: FDA-Public Use
  Company Number: US-PFIZER INC-2012198823

PATIENT
  Age: 76 Year
  Sex: Female
  Weight: 61.224 kg

DRUGS (2)
  1. CARDURA [Suspect]
     Indication: HYPERTENSION
     Dosage: 4 MG, DAILY
  2. AUGMENTIN '500' [Suspect]
     Indication: UPPER RESPIRATORY TRACT INFECTION
     Dosage: UNK, DAILY
     Dates: start: 20120401, end: 20120101

REACTIONS (3)
  - UPPER RESPIRATORY TRACT INFECTION [None]
  - GOITRE [None]
  - DIARRHOEA [None]
